FAERS Safety Report 5424518-8 (Version None)
Quarter: 2007Q3

REPORT INFORMATION
  Report Type: 
  Country: None (occurrence: None)
  Receive Date: 20070822
  Receipt Date: 20070806
  Transmission Date: 20080115
  Serious: Yes (Hospitalization)
  Sender: FDA-Public Use
  Company Number: 8021840

PATIENT
  Age: 77 Year
  Sex: Male

DRUGS (1)
  1. KEPPRA [Suspect]
     Dosage: 8 G

REACTIONS (3)
  - ADRENAL INSUFFICIENCY [None]
  - COMA [None]
  - HYPONATRAEMIA [None]
